APPROVED DRUG PRODUCT: GYNE-SULF
Active Ingredient: TRIPLE SULFA (SULFABENZAMIDE;SULFACETAMIDE;SULFATHIAZOLE)
Strength: 3.7%;2.86%;3.42%
Dosage Form/Route: CREAM;VAGINAL
Application: A088607 | Product #001
Applicant: COSETTE PHARMACEUTICALS INC
Approved: Jun 9, 1986 | RLD: No | RS: No | Type: DISCN